FAERS Safety Report 6171452-4 (Version None)
Quarter: 2009Q2

REPORT INFORMATION
  Report Type: 
  Country: None (occurrence: None)
  Receive Date: 20090429
  Receipt Date: 20090424
  Transmission Date: 20091009
  Serious: Yes (Other)
  Sender: FDA-Public Use
  Company Number: RU-ABBOTT-09P-251-0569994-00

PATIENT
  Age: 20 Year
  Sex: Female

DRUGS (1)
  1. DEPAKENE [Suspect]
     Indication: EPILEPSY
     Route: 048
     Dates: start: 20081201

REACTIONS (4)
  - BLEPHAROSPASM [None]
  - CONVULSIONS LOCAL [None]
  - ORAL DISCOMFORT [None]
  - PRODUCT COUNTERFEIT [None]
